FAERS Safety Report 7271038-4 (Version None)
Quarter: 2011Q1

REPORT INFORMATION
  Report Type: 
  Country: None (occurrence: None)
  Receive Date: 20110202
  Receipt Date: 20110120
  Transmission Date: 20110831
  Serious: Yes (Hospitalization)
  Sender: FDA-Public Use
  Company Number: JP-CELGENEUS-087-21880-10100394

PATIENT
  Sex: Female
  Weight: 39.9 kg

DRUGS (23)
  1. REVLIMID [Suspect]
     Route: 048
     Dates: start: 20100928, end: 20101019
  2. LENADEX [Suspect]
     Route: 048
     Dates: start: 20100928, end: 20100929
  3. LAXOBERON [Concomitant]
     Route: 048
     Dates: start: 20100625, end: 20100927
  4. LENADEX [Suspect]
     Route: 048
     Dates: start: 20101012, end: 20101013
  5. OMEPRAL [Concomitant]
     Route: 048
     Dates: start: 20100912, end: 20100915
  6. PALGIN [Concomitant]
     Route: 048
     Dates: start: 20100106
  7. LENADEX [Suspect]
     Route: 048
     Dates: start: 20101005, end: 20101006
  8. OMEPRAL [Concomitant]
     Indication: PROPHYLAXIS
     Route: 048
     Dates: start: 20100827, end: 20100830
  9. LENADEX [Suspect]
     Route: 048
     Dates: start: 20101026, end: 20101027
  10. OSTELUC [Concomitant]
     Route: 048
     Dates: start: 20100106
  11. LENADEX [Suspect]
     Indication: MULTIPLE MYELOMA
     Route: 048
     Dates: start: 20100827, end: 20100830
  12. SELBEX [Concomitant]
     Indication: PROPHYLAXIS
     Route: 048
     Dates: start: 20100106
  13. REVLIMID [Suspect]
     Indication: MULTIPLE MYELOMA
     Route: 048
     Dates: start: 20100827, end: 20100916
  14. LENADEX [Suspect]
     Route: 048
     Dates: start: 20100904, end: 20100907
  15. LENADEX [Suspect]
     Route: 048
     Dates: start: 20101102, end: 20101103
  16. LENADEX [Suspect]
     Route: 048
     Dates: start: 20101109, end: 20101110
  17. REVLIMID [Suspect]
     Route: 048
     Dates: start: 20101026, end: 20101116
  18. LENADEX [Suspect]
     Route: 048
     Dates: start: 20100912, end: 20100915
  19. OMEPRAL [Concomitant]
     Route: 048
     Dates: start: 20100904, end: 20100907
  20. GASMOTIN [Concomitant]
     Indication: PROPHYLAXIS
     Route: 048
     Dates: start: 20100716, end: 20100912
  21. NATRIX [Concomitant]
     Indication: HYPERTENSION
     Route: 048
     Dates: start: 20100701, end: 20100923
  22. BLOPRESS [Concomitant]
     Indication: HYPERTENSION
     Route: 048
     Dates: start: 20100702
  23. DUROTEP MT [Concomitant]
     Route: 062
     Dates: start: 20100715

REACTIONS (4)
  - HYPOCALCAEMIA [None]
  - HYPOMAGNESAEMIA [None]
  - BLOOD ALKALINE PHOSPHATASE INCREASED [None]
  - TETANY [None]
